FAERS Safety Report 6417725-9 (Version None)
Quarter: 2009Q4

REPORT INFORMATION
  Report Type: 
  Country: None (occurrence: None)
  Receive Date: 20091027
  Receipt Date: 20091027
  Transmission Date: 20100525
  Serious: Yes (Disabling)
  Sender: FDA-Public Use
  Company Number: None

PATIENT
  Age: 23 Year
  Sex: Female
  Weight: 40.1 kg

DRUGS (14)
  1. AMIKACIN [Suspect]
     Indication: CYSTIC FIBROSIS
     Dosage: IV, ON AND OFF ONE YEAR (10 COURSES)
     Route: 042
  2. ATOVAQUONE [Concomitant]
  3. AZITHROMYCIN [Concomitant]
  4. CALCITRIOL [Concomitant]
  5. CETIRZINE [Concomitant]
  6. DOXYCYCLINE [Concomitant]
  7. GABAPENTIN [Concomitant]
  8. BISOPRAZOLE [Concomitant]
  9. METHYLPHENIDATE HCL [Concomitant]
  10. CEFTAZIDIME [Concomitant]
  11. PAROXETINE [Concomitant]
  12. PREDNISONE [Concomitant]
  13. QUETIAPINE [Concomitant]
  14. VORICONAZOLE [Concomitant]

REACTIONS (3)
  - EAR CONGESTION [None]
  - HYPOACUSIS [None]
  - OTOTOXICITY [None]
